FAERS Safety Report 9250575 (Version 1)
Quarter: 2013Q1

REPORT INFORMATION
  Report Type: Spontaneous
  Country: US (occurrence: None)
  Receive Date: 20130305
  Receipt Date: 20130305
  Transmission Date: 20140127
  Serious: Yes (Disabling)
  Sender: FDA-Public Use
  Company Number: 163-21880-12062411

PATIENT
  Age: 46 Year
  Sex: Male

DRUGS (3)
  1. REVLIMID [Suspect]
     Indication: PLASMA CELL MYELOMA
     Dosage: 25 MG, 1 IN 1 D, PO
     Route: 048
     Dates: start: 20120323, end: 20120415
  2. BORTEZOMIB (BORTEZOMIB) (INJECTION) [Concomitant]
     Route: 058
     Dates: start: 20120326, end: 20120412
  3. DEXAMETHASONE (DEXAMETHASONE) (UNKNOWN) [Concomitant]
     Route: 048
     Dates: start: 20120326, end: 20120412

REACTIONS (3)
  - Dry skin [None]
  - Pruritus [None]
  - Rash [None]
